FAERS Safety Report 6592010-3 (Version None)
Quarter: 2010Q1

REPORT INFORMATION
  Report Type: 
  Country: None (occurrence: None)
  Receive Date: 20100221
  Receipt Date: 20091104
  Transmission Date: 20100710
  Serious: Yes (Disabling, Other)
  Sender: FDA-Public Use
  Company Number: US-ALLERGAN-0911697US

PATIENT
  Age: 71 Year
  Sex: Female
  Weight: 61.678 kg

DRUGS (27)
  1. BOTOX [Suspect]
     Indication: TORTICOLLIS
     Dosage: 300 UNITS, SINGLE EMG GUIDED
     Route: 030
     Dates: start: 20090702, end: 20090702
  2. BOTOX [Suspect]
     Dosage: 270 UNK, SINGLE EMG GUIDED
     Route: 030
     Dates: start: 20090924, end: 20090924
  3. BOTOX [Suspect]
     Dosage: 300 UNK, SINGLE  EMG GUIDED
     Route: 030
     Dates: start: 20050630, end: 20050630
  4. BOTOX [Suspect]
     Dosage: 300 UNK, SINGLE EMG GUIDED
     Route: 030
     Dates: start: 20051006, end: 20051006
  5. BOTOX [Suspect]
     Dosage: 400 UNK, SINGLE EMG GUIDED
     Route: 030
     Dates: start: 20060112, end: 20060112
  6. BOTOX [Suspect]
     Dosage: 400 UNK, SINGLE EMG GUIDED
     Route: 030
     Dates: start: 20060406, end: 20060406
  7. BOTOX [Suspect]
     Dosage: 400 UNK, SINGLE EMG GUIDED
     Route: 030
     Dates: start: 20060629, end: 20060629
  8. BOTOX [Suspect]
     Dosage: 350 UNK, SINGLE EMG GUIDED
     Route: 030
     Dates: start: 20060928, end: 20060928
  9. BOTOX [Suspect]
     Dosage: 300 UNK, SINGLE EMG GUIDED
     Route: 030
     Dates: start: 20070104, end: 20070104
  10. BOTOX [Suspect]
     Dosage: 300 UNK, SINGLE EMG GUIDED
     Route: 030
     Dates: start: 20070405, end: 20070405
  11. BOTOX [Suspect]
     Dosage: 300 UNK, SINGLE EMG GUIDED
     Route: 030
     Dates: start: 20070705, end: 20070705
  12. BOTOX [Suspect]
     Dosage: 300 UNK, SINGLE EMG GUIDED
     Route: 030
     Dates: start: 20071010, end: 20071010
  13. BOTOX [Suspect]
     Dosage: 300 UNK, SINGLE EMG GUIDED
     Route: 030
     Dates: start: 20080207, end: 20080207
  14. BOTOX [Suspect]
     Dosage: 300 UNK, SINGLE EMG GUIDED
     Route: 030
     Dates: start: 20080508, end: 20080508
  15. BOTOX [Suspect]
     Dosage: 300 UNK, SINGLE EMG GUIDED
     Route: 030
     Dates: start: 20080807, end: 20080807
  16. BOTOX [Suspect]
     Dosage: 300 UNK, SINGLE EMG GUIDED
     Route: 030
     Dates: start: 20081113, end: 20081113
  17. BOTOX [Suspect]
     Dosage: 300 UNK, SINGLE EMG GUIDED
     Route: 030
     Dates: start: 20090402, end: 20090402
  18. ZANAFLEX [Concomitant]
     Indication: DYSTONIA
     Dosage: 2 MG, BID
     Dates: start: 20090813
  19. SOTALOL HCL [Concomitant]
     Dosage: 80 MG, BID
     Dates: start: 20090813
  20. NAPROSYN [Concomitant]
     Indication: PAIN
     Dosage: 500 MG, BID
     Dates: start: 20090813
  21. COUMADIN [Concomitant]
     Dosage: 2.5 MG, QD
     Dates: start: 20090813
  22. MORPHINE SULFATE [Concomitant]
     Indication: PAIN
     Dosage: 30 MG, BID
     Dates: start: 20050101
  23. CITALOPRAM HYDROBROMIDE [Concomitant]
     Dosage: 40 MG, QD
     Dates: start: 20030101
  24. LIDODERM [Concomitant]
     Indication: ANALGESIC THERAPY
     Dosage: Q12 PRN
     Route: 062
     Dates: start: 20090813
  25. FAMOTIDINE [Concomitant]
     Indication: GASTROOESOPHAGEAL REFLUX DISEASE
     Dosage: 20 MG, BID PRN
     Dates: start: 20050629
  26. ACETAMINOPHEN AND HYDROCODONE BITARTRATE [Concomitant]
     Indication: PAIN
     Dosage: 7.5/100 MG 1-2 QD PRN
     Dates: start: 20030101
  27. METOPROLOL TARTRATE [Concomitant]

REACTIONS (7)
  - BACK PAIN [None]
  - INJECTION SITE PAIN [None]
  - MUSCLE SPASMS [None]
  - MUSCULAR WEAKNESS [None]
  - PAIN [None]
  - THERAPEUTIC RESPONSE DECREASED [None]
  - TORTICOLLIS [None]
